FAERS Safety Report 14496833 (Version 4)
Quarter: 2019Q2

REPORT INFORMATION
  Report Type: Spontaneous
  Country: US (occurrence: US)
  Receive Date: 20180207
  Receipt Date: 20190530
  Transmission Date: 20190711
  Serious: Yes (Hospitalization)
  Sender: FDA-Public Use
  Company Number: US-PFIZER INC-2018052709

PATIENT
  Age: 66 Year
  Sex: Female
  Weight: 79.82 kg

DRUGS (6)
  1. IBRANCE [Suspect]
     Active Substance: PALBOCICLIB
     Dosage: 125 MG, CYCLIC (ONE TIME A DAY, FOR 21 DAYS AND OFF FOR 7 (DAYS))
     Dates: start: 2014
  2. IBRANCE [Suspect]
     Active Substance: PALBOCICLIB
     Indication: NEOPLASM MALIGNANT
     Dosage: 125 MG, CYCLIC (21 DAYS ON AND 7 DAYS OFF)
     Dates: start: 2014
  3. FUROSEMIDE. [Concomitant]
     Active Substance: FUROSEMIDE
     Indication: DYSPNOEA
     Dosage: 20 MG, 1X/DAY
     Dates: start: 2015
  4. IBRANCE [Suspect]
     Active Substance: PALBOCICLIB
     Dosage: 125 MG, CYCLIC (DAILY) (21 DAYS ON 7 DAYS OFF)
     Dates: start: 2015
  5. LETROZOLE. [Suspect]
     Active Substance: LETROZOLE
     Indication: NEOPLASM MALIGNANT
     Dosage: 2.5 MG, DAILY
  6. LETROZOLE. [Suspect]
     Active Substance: LETROZOLE
     Dosage: 1.5 MG, 1X/DAY

REACTIONS (13)
  - Malaise [Recovering/Resolving]
  - Sensitivity to weather change [Unknown]
  - Cognitive disorder [Unknown]
  - Abdominal pain upper [Recovering/Resolving]
  - Pain [Not Recovered/Not Resolved]
  - Swelling [Recovering/Resolving]
  - Cough [Recovering/Resolving]
  - Dyspnoea [Not Recovered/Not Resolved]
  - Thinking abnormal [Unknown]
  - Vomiting [Recovering/Resolving]
  - Musculoskeletal stiffness [Not Recovered/Not Resolved]
  - Neoplasm progression [Unknown]
  - Memory impairment [Unknown]

NARRATIVE: CASE EVENT DATE: 2015
